FAERS Safety Report 20035849 (Version 1)
Quarter: 2021Q4

REPORT INFORMATION
  Report Type: Spontaneous
  Country: US (occurrence: US)
  Receive Date: 20211105
  Receipt Date: 20211105
  Transmission Date: 20220303
  Serious: Yes (Death, Hospitalization)
  Sender: FDA-Public Use
  Company Number: US-JNJFOC-20211054974

PATIENT
  Age: 29 Year
  Sex: Female
  Weight: 87 kg

DRUGS (1)
  1. ACETAMINOPHEN [Suspect]
     Active Substance: ACETAMINOPHEN
     Indication: Suicide attempt
     Route: 065

REACTIONS (9)
  - Completed suicide [Fatal]
  - Acute hepatic failure [Fatal]
  - Multiple organ dysfunction syndrome [Fatal]
  - Hepatic necrosis [Fatal]
  - Blood creatinine increased [Fatal]
  - Acute respiratory distress syndrome [Fatal]
  - Pancreatitis acute [Fatal]
  - Klebsiella infection [Fatal]
  - Intentional overdose [Fatal]

NARRATIVE: CASE EVENT DATE: 19980903
